FAERS Safety Report 4783666-6 (Version None)
Quarter: 2005Q3

REPORT INFORMATION
  Report Type: 
  Country: None (occurrence: None)
  Receive Date: 20050928
  Receipt Date: 20050915
  Transmission Date: 20060218
  Serious: Yes (Other)
  Sender: FDA-Public Use
  Company Number: 2005130530

PATIENT
  Sex: Male

DRUGS (2)
  1. VFEND [Suspect]
     Indication: FUSARIUM INFECTION
     Dates: start: 20050911, end: 20050901
  2. MORPHINE SULFATE [Concomitant]

REACTIONS (3)
  - AGGRESSION [None]
  - AGITATION [None]
  - HALLUCINATION [None]
